FAERS Safety Report 8811432 (Version 1)
Quarter: 2012Q4

REPORT INFORMATION
  Report Type: Spontaneous
  Country: US (occurrence: None)
  Receive Date: 20120925
  Receipt Date: 20120925
  Transmission Date: 20130627
  Serious: Yes (Hospitalization)
  Sender: FDA-Public Use
  Company Number: None

PATIENT
  Age: 69 Year
  Sex: Female
  Weight: 80.4 kg

DRUGS (2)
  1. LAMICTAL [Suspect]
     Route: 048
     Dates: start: 20120906, end: 20120912
  2. LAMICTAL [Suspect]
     Route: 048
     Dates: start: 20120913, end: 20120917

REACTIONS (4)
  - Loss of consciousness [None]
  - Rhabdomyolysis [None]
  - Meningitis aseptic [None]
  - Toxicity to various agents [None]
